FAERS Safety Report 8022718-4 (Version None)
Quarter: 2012Q1

REPORT INFORMATION
  Report Type: 
  Country: None (occurrence: None)
  Receive Date: 20120104
  Receipt Date: 20111227
  Transmission Date: 20120608
  Serious: Yes (Other)
  Sender: FDA-Public Use
  Company Number: PHHY2011DE106350

PATIENT
  Sex: Male

DRUGS (3)
  1. ALLOPURINOL [Concomitant]
  2. VOLTAREN [Suspect]
  3. VALSARTAN [Suspect]
     Indication: HYPERTENSION
     Dosage: 1 DF, QD
     Route: 048
     Dates: start: 20050101

REACTIONS (8)
  - ABDOMINAL PAIN UPPER [None]
  - HIGH DENSITY LIPOPROTEIN DECREASED [None]
  - HEPATIC STEATOSIS [None]
  - BLOOD GLUCOSE INCREASED [None]
  - SERUM FERRITIN INCREASED [None]
  - ANTINUCLEAR ANTIBODY INCREASED [None]
  - ALANINE AMINOTRANSFERASE INCREASED [None]
  - BLOOD THYROID STIMULATING HORMONE INCREASED [None]
